FAERS Safety Report 24357724 (Version 1)
Quarter: 2024Q3

REPORT INFORMATION
  Report Type: Spontaneous
  Country: RO (occurrence: RO)
  Receive Date: 20240924
  Receipt Date: 20240924
  Transmission Date: 20241016
  Serious: Yes (Other)
  Sender: MERCK
  Company Number: RO-009507513-2409ROU007546

PATIENT
  Age: 77 Year

DRUGS (1)
  1. PEMBROLIZUMAB [Suspect]
     Active Substance: PEMBROLIZUMAB
     Indication: Transitional cell carcinoma
     Dosage: UNK
     Dates: start: 20240613

REACTIONS (3)
  - Myasthenic syndrome [Unknown]
  - Thrombosis [Unknown]
  - Skin reaction [Unknown]

NARRATIVE: CASE EVENT DATE: 20240727
